FAERS Safety Report 13539580 (Version 2)
Quarter: 2017Q2

REPORT INFORMATION
  Report Type: Spontaneous
  Country: US (occurrence: US)
  Receive Date: 20170512
  Receipt Date: 20170522
  Transmission Date: 20170830
  Serious: Yes (Death, Hospitalization)
  Sender: FDA-Public Use
  Company Number: US-JNJFOC-20170501764

PATIENT
  Age: 24 Year
  Sex: Female

DRUGS (1)
  1. ACETAMINOPHEN. [Suspect]
     Active Substance: ACETAMINOPHEN
     Indication: PRODUCT USED FOR UNKNOWN INDICATION
     Dosage: 300 TABLETS
     Route: 048

REACTIONS (8)
  - Coma [Fatal]
  - Myocardial necrosis [Fatal]
  - Suicide attempt [Fatal]
  - Metabolic acidosis [Fatal]
  - Acute hepatic failure [Fatal]
  - Heart injury [Fatal]
  - Distributive shock [Fatal]
  - Intentional overdose [Fatal]
